FAERS Safety Report 6107292-1 (Version None)
Quarter: 2009Q1

REPORT INFORMATION
  Report Type: 
  Country: None (occurrence: None)
  Receive Date: 20090309
  Receipt Date: 20090225
  Transmission Date: 20090719
  Serious: Yes (Disabling, Other)
  Sender: FDA-Public Use
  Company Number: FR-BAYER-200914940GPV

PATIENT
  Age: 28 Year
  Sex: Male

DRUGS (8)
  1. IZILOX [Suspect]
     Indication: TUBERCULOSIS
     Dosage: TOTAL DAILY DOSE: 400 MG  UNIT DOSE: 400 MG
     Route: 048
     Dates: start: 20090114, end: 20090206
  2. IZILOX [Suspect]
     Dosage: TOTAL DAILY DOSE: 400 MG  UNIT DOSE: 400 MG
     Route: 048
     Dates: start: 20080401, end: 20081201
  3. DEXAMBUTOL [Suspect]
     Indication: TUBERCULOSIS
     Dosage: TOTAL DAILY DOSE: 1000 MG  UNIT DOSE: 1000 MG
     Route: 048
     Dates: start: 20080401, end: 20081201
  4. DEXAMBUTOL [Suspect]
     Dosage: TOTAL DAILY DOSE: 1000 MG  UNIT DOSE: 1000 MG
     Route: 048
     Dates: end: 20090111
  5. PIRILENE [Suspect]
     Indication: TUBERCULOSIS
     Route: 048
     Dates: end: 20081201
  6. PIRILENE [Suspect]
     Route: 048
     Dates: start: 20090114
  7. ETHIONAMIDE [Suspect]
     Indication: TUBERCULOSIS
     Route: 065
     Dates: end: 20081201
  8. CAPREOMYCIN [Suspect]
     Indication: TUBERCULOSIS
     Route: 065
     Dates: end: 20081201

REACTIONS (6)
  - CHROMATOPSIA [None]
  - GLAUCOMA [None]
  - IRIS HYPOPIGMENTATION [None]
  - MUSCLE SPASMS [None]
  - UVEITIS [None]
  - VERTIGO [None]
